FAERS Safety Report 6420451-3 (Version None)
Quarter: 2009Q4

REPORT INFORMATION
  Report Type: 
  Country: None (occurrence: None)
  Receive Date: 20091021
  Receipt Date: 20090814
  Transmission Date: 20100525
  Serious: No
  Sender: FDA-Public Use
  Company Number: ALL1-2009-02335

PATIENT
  Age: 49 Year
  Sex: Female
  Weight: 80.7 kg

DRUGS (4)
  1. VYVANSE [Suspect]
     Indication: DISTURBANCE IN ATTENTION
     Dosage: SEE IMAGE
     Route: 048
     Dates: start: 20080101, end: 20080101
  2. VYVANSE [Suspect]
     Indication: DISTURBANCE IN ATTENTION
     Dosage: SEE IMAGE
     Route: 048
     Dates: start: 20080101, end: 20090701
  3. VYVANSE [Suspect]
     Indication: DISTURBANCE IN ATTENTION
     Dosage: SEE IMAGE
     Route: 048
     Dates: start: 20090701, end: 20090812
  4. VYVANSE [Suspect]
     Indication: DISTURBANCE IN ATTENTION
     Dosage: SEE IMAGE
     Route: 048
     Dates: start: 20090813

REACTIONS (5)
  - DRUG INEFFECTIVE [None]
  - DRUG PRESCRIBING ERROR [None]
  - INCORRECT DOSE ADMINISTERED [None]
  - PAIN IN EXTREMITY [None]
  - PRODUCT QUALITY ISSUE [None]
